FAERS Safety Report 15462512 (Version 1)
Quarter: 2018Q4

REPORT INFORMATION
  Report Type: Spontaneous
  Country: TW (occurrence: TW)
  Receive Date: 20181004
  Receipt Date: 20181004
  Transmission Date: 20190204
  Serious: Yes (Other)
  Sender: FDA-Public Use
  Company Number: PHHY2018TW116089

PATIENT
  Age: 57 Year
  Sex: Female

DRUGS (1)
  1. AFINITOR [Suspect]
     Active Substance: EVEROLIMUS
     Indication: BREAST CANCER
     Dosage: UNK
     Route: 065
     Dates: start: 20170331

REACTIONS (5)
  - Chest pain [Unknown]
  - Mucosal inflammation [Recovered/Resolved]
  - Malignant neoplasm progression [Unknown]
  - Hepatitis [Unknown]
  - Breast cancer [Unknown]

NARRATIVE: CASE EVENT DATE: 20170526
